FAERS Safety Report 9233257 (Version 2)
Quarter: 2013Q2

REPORT INFORMATION
  Report Type: Spontaneous
  Country: US (occurrence: US)
  Receive Date: 20130416
  Receipt Date: 20130416
  Transmission Date: 20140414
  Serious: No
  Sender: FDA-Public Use
  Company Number: US-BANPHARM-20130687

PATIENT
  Age: 72 Year
  Sex: Male
  Weight: 113.4 kg

DRUGS (15)
  1. ALEVE LIQUID GELS 220MG [Suspect]
     Indication: ARTHRITIS
     Dosage: 2 DF, QD,
     Route: 048
     Dates: start: 20120204
  2. ALEVE CAPLETS [Suspect]
     Indication: ARTHRITIS
     Dosage: 2 DF, QD,
     Route: 048
     Dates: start: 201103, end: 20120203
  3. FUROSEMIDE [Concomitant]
  4. BENICAR [Concomitant]
  5. NIFEDIPINE ER [Concomitant]
  6. GLIPIZIDE [Concomitant]
  7. NEXIUM [Concomitant]
  8. CENTRUM SILVER [Concomitant]
  9. LOW DOSE ASPIRIN REGIMEN BAYER [Concomitant]
  10. FIBER CHOICE [Concomitant]
  11. OMEGA 3 [Concomitant]
  12. STOOL SOFTENER [Concomitant]
  13. B COMPLEX [Concomitant]
  14. DIOVAN [Concomitant]
  15. L-ARGININE [Concomitant]

REACTIONS (1)
  - Fluid retention [Not Recovered/Not Resolved]
